FAERS Safety Report 5365094-8 (Version None)
Quarter: 2007Q2

REPORT INFORMATION
  Report Type: 
  Country: None (occurrence: None)
  Receive Date: 20070530
  Receipt Date: 20070208
  Transmission Date: 20071010
  Serious: No
  Sender: FDA-Public Use
  Company Number: 2006PV014920

PATIENT
  Age: 73 Year
  Sex: Female
  Weight: 86.1834 kg

DRUGS (5)
  1. BYETTA [Suspect]
     Indication: DIABETES MELLITUS NON-INSULIN-DEPENDENT
     Dosage: 10 MCG; BID; SC;  5 MCG;BID; SC
     Route: 058
     Dates: start: 20060519, end: 20060601
  2. BYETTA [Suspect]
     Indication: DIABETES MELLITUS NON-INSULIN-DEPENDENT
     Dosage: 10 MCG; BID; SC;  5 MCG;BID; SC
     Route: 058
     Dates: start: 20060601
  3. BYETTA [Suspect]
  4. GLUCOPHAGE [Concomitant]
  5. METFORMIN HCL [Concomitant]

REACTIONS (3)
  - ANOREXIA [None]
  - INCORRECT DOSE ADMINISTERED [None]
  - WEIGHT DECREASED [None]
